FAERS Safety Report 7190512-2 (Version None)
Quarter: 2010Q4

REPORT INFORMATION
  Report Type: 
  Country: None (occurrence: None)
  Receive Date: 20101223
  Receipt Date: 20101216
  Transmission Date: 20110411
  Serious: Yes (Hospitalization)
  Sender: FDA-Public Use
  Company Number: US-ELI_LILLY_AND_COMPANY-US201012004370

PATIENT
  Sex: Male

DRUGS (4)
  1. HUMALOG [Suspect]
     Indication: TYPE 1 DIABETES MELLITUS
     Dosage: 7 U, OTHER
     Dates: start: 19950101
  2. HUMALOG [Suspect]
     Dosage: 8 U, OTHER
     Dates: start: 19950101
  3. HUMALOG [Suspect]
     Dosage: 9 U, OTHER
     Dates: start: 19950101
  4. LANTUS [Concomitant]
     Dosage: UNK, EACH EVENING

REACTIONS (2)
  - CORONARY ARTERY BYPASS [None]
  - SPINAL FUSION SURGERY [None]
